FAERS Safety Report 9426842 (Version 1)
Quarter: 2013Q3

REPORT INFORMATION
  Report Type: Spontaneous
  Country: US (occurrence: US)
  Receive Date: 20130730
  Receipt Date: 20130730
  Transmission Date: 20140515
  Serious: No
  Sender: FDA-Public Use
  Company Number: US-SANOFI-AVENTIS-2013SA046802

PATIENT
  Age: 40 Year
  Sex: Male
  Weight: 72.57 kg

DRUGS (6)
  1. AMBIEN [Suspect]
     Indication: SLEEP DISORDER
     Route: 065
  2. ANDROGEL [Suspect]
     Indication: BLOOD TESTOSTERONE DECREASED
     Dosage: DAILY DOSE- 2 PUMPS DAILY
     Route: 061
     Dates: start: 201211, end: 20130409
  3. ANDROGEL [Suspect]
     Indication: BLOOD TESTOSTERONE DECREASED
     Dosage: DOSE-3 PUMPS DAILY
     Route: 061
     Dates: start: 20130409
  4. COPAXONE [Concomitant]
  5. WELLBUTRIN [Concomitant]
  6. TYLOX [Concomitant]

REACTIONS (2)
  - Blood testosterone decreased [Unknown]
  - Irritability [Unknown]
